FAERS Safety Report 6589854-0 (Version None)
Quarter: 2010Q1

REPORT INFORMATION
  Report Type: 
  Country: None (occurrence: None)
  Receive Date: 20100219
  Receipt Date: 20100209
  Transmission Date: 20100710
  Serious: Yes (Other)
  Sender: FDA-Public Use
  Company Number: BR-JNJFOC-20100109565

PATIENT
  Sex: Male

DRUGS (3)
  1. REMICADE [Suspect]
     Indication: COLITIS ULCERATIVE
     Dosage: 2ND INFUSION
     Route: 042
     Dates: start: 20091004, end: 20100101
  2. REMICADE [Suspect]
     Dosage: RECEIVED 2 INFUSIONS
     Route: 042
     Dates: start: 20091004, end: 20100101
  3. REMICADE [Suspect]
     Dosage: 3RD INFUSION
     Route: 042
     Dates: start: 20091004, end: 20100101

REACTIONS (13)
  - ANGINA PECTORIS [None]
  - ARTHRALGIA [None]
  - COLITIS ULCERATIVE [None]
  - DECREASED APPETITE [None]
  - FATIGUE [None]
  - HEADACHE [None]
  - IMPAIRED WORK ABILITY [None]
  - MALAISE [None]
  - MYALGIA [None]
  - PYREXIA [None]
  - RENAL PAIN [None]
  - SWELLING FACE [None]
  - WEIGHT DECREASED [None]
